FAERS Safety Report 18634411 (Version 1)
Quarter: 2020Q4

REPORT INFORMATION
  Report Type: Spontaneous
  Country: US (occurrence: US)
  Receive Date: 20201218
  Receipt Date: 20201218
  Transmission Date: 20210114
  Serious: Yes (Disabling)
  Sender: FDA-Public Use
  Company Number: None

PATIENT
  Age: 58 Year
  Sex: Male
  Weight: 149.4 kg

DRUGS (1)
  1. QVAR [Suspect]
     Active Substance: BECLOMETHASONE DIPROPIONATE
     Indication: ASTHMA
     Dosage: ?          QUANTITY:120 PUFF(S);?
     Route: 055

REACTIONS (3)
  - Dyspnoea [None]
  - Incorrect dose administered by device [None]
  - Tachycardia [None]

NARRATIVE: CASE EVENT DATE: 20201216
